FAERS Safety Report 10379306 (Version 5)
Quarter: 2014Q3

REPORT INFORMATION
  Report Type: Report from Study
  Country: FR (occurrence: FR)
  Receive Date: 20140812
  Receipt Date: 20140922
  Transmission Date: 20150326
  Serious: Yes (Hospitalization)
  Sender: FDA-Public Use
  Company Number: FR-JNJFOC-20140508581

PATIENT
  Age: 63 Year
  Sex: Male
  Weight: 96 kg

DRUGS (8)
  1. IBRUTINIB [Suspect]
     Active Substance: IBRUTINIB
     Indication: MANTLE CELL LYMPHOMA
     Route: 048
     Dates: start: 20140411
  2. ESOMEPRAZOLE [Concomitant]
     Active Substance: ESOMEPRAZOLE
  3. IBRUTINIB [Suspect]
     Active Substance: IBRUTINIB
     Indication: MANTLE CELL LYMPHOMA
     Route: 048
     Dates: start: 20140701
  4. LASILIX [Concomitant]
     Active Substance: FUROSEMIDE
  5. PARACETAMOL [Concomitant]
     Active Substance: ACETAMINOPHEN
  6. KALEORID [Concomitant]
     Active Substance: POTASSIUM CHLORIDE
  7. PROCORALAN [Concomitant]
     Active Substance: IVABRADINE
  8. TRAMADOL [Concomitant]
     Active Substance: TRAMADOL

REACTIONS (5)
  - Gastric ulcer [Unknown]
  - Therapy cessation [Recovered/Resolved]
  - Gastric haemorrhage [Unknown]
  - Blood lactate dehydrogenase increased [Unknown]
  - Erysipelas [Unknown]

NARRATIVE: CASE EVENT DATE: 20140502
